FAERS Safety Report 5648023-9 (Version None)
Quarter: 2008Q1

REPORT INFORMATION
  Report Type: 
  Country: None (occurrence: None)
  Receive Date: 20080229
  Receipt Date: 20080229
  Transmission Date: 20080703
  Serious: Yes (Hospitalization)
  Sender: FDA-Public Use
  Company Number: None

PATIENT
  Sex: Male
  Weight: 77.5 kg

DRUGS (10)
  1. DOXORUBICIN HYDROCHLORIDE [Suspect]
     Dosage: 60 MG
  2. GEMCITABINE HCL [Suspect]
     Dosage: 1600 MG
  3. TAXOL [Suspect]
     Dosage: 270 MG
  4. NEULASTA [Suspect]
     Dosage: 6 MG
  5. LOVENOX [Concomitant]
  6. PROTONIX [Concomitant]
  7. REGLAN [Concomitant]
  8. REMERON [Concomitant]
  9. RITALIN [Concomitant]
  10. ZOFRAN [Concomitant]

REACTIONS (23)
  - ADRENAL INSUFFICIENCY [None]
  - ATELECTASIS [None]
  - ATRIAL FIBRILLATION [None]
  - BACTERIA URINE IDENTIFIED [None]
  - BLOOD CREATININE INCREASED [None]
  - BLOOD POTASSIUM INCREASED [None]
  - BLOOD UREA INCREASED [None]
  - DEEP VEIN THROMBOSIS [None]
  - DIARRHOEA [None]
  - ESCHERICHIA INFECTION [None]
  - FEBRILE NEUTROPENIA [None]
  - HAEMOGLOBIN DECREASED [None]
  - HAEMOGLOBIN URINE PRESENT [None]
  - HYDRONEPHROSIS [None]
  - HYPOTENSION [None]
  - METABOLIC ACIDOSIS [None]
  - OEDEMA PERIPHERAL [None]
  - PROTEINURIA [None]
  - PSEUDOMONAS INFECTION [None]
  - SEPSIS [None]
  - STAPHYLOCOCCAL INFECTION [None]
  - TROPONIN INCREASED [None]
  - WHITE BLOOD CELL COUNT DECREASED [None]
